FAERS Safety Report 8373751-4 (Version None)
Quarter: 2012Q2

REPORT INFORMATION
  Report Type: 
  Country: None (occurrence: None)
  Receive Date: 20120521
  Receipt Date: 20120514
  Transmission Date: 20120825
  Serious: Yes (Hospitalization)
  Sender: FDA-Public Use
  Company Number: JP-ASTRAZENECA-2012SE31749

PATIENT
  Age: 25460 Day
  Sex: Female

DRUGS (8)
  1. METFORMIN HYDROCHLORIDE [Suspect]
     Indication: TYPE 2 DIABETES MELLITUS
     Route: 048
     Dates: end: 20110919
  2. DIGOXIN [Concomitant]
     Indication: ATRIAL FIBRILLATION
     Route: 048
  3. CYCLO 3 FORT [Concomitant]
     Indication: PRODUCT USED FOR UNKNOWN INDICATION
     Route: 048
  4. FUROSEMIDE [Concomitant]
     Indication: PRODUCT USED FOR UNKNOWN INDICATION
     Route: 048
  5. CANDESARTAN CILEXETIL [Suspect]
     Indication: HYPERTENSION
     Route: 048
     Dates: start: 20110501, end: 20110919
  6. PENTOXIFYLLINE [Concomitant]
     Indication: ATRIAL FIBRILLATION
     Route: 048
  7. TANGANIL [Concomitant]
     Indication: PRODUCT USED FOR UNKNOWN INDICATION
     Route: 048
  8. NEXIUM [Concomitant]
     Indication: PRODUCT USED FOR UNKNOWN INDICATION
     Route: 048

REACTIONS (5)
  - LOCALISED OEDEMA [None]
  - TONGUE OEDEMA [None]
  - PALATAL OEDEMA [None]
  - OEDEMA PERIPHERAL [None]
  - ANGIOEDEMA [None]
